FAERS Safety Report 7237387-0 (Version None)
Quarter: 2011Q1

REPORT INFORMATION
  Report Type: 
  Country: None (occurrence: None)
  Receive Date: 20110121
  Receipt Date: 20110107
  Transmission Date: 20110831
  Serious: Yes (Other)
  Sender: FDA-Public Use
  Company Number: MX-ELI_LILLY_AND_COMPANY-MX201012005703

PATIENT
  Age: 75 Year
  Sex: Female
  Weight: 58 kg

DRUGS (3)
  1. EUTIROX [Concomitant]
     Dosage: 75 MG, DAILY (1/D)
     Dates: start: 20101001
  2. FELODIPINE W/RAMIPRIL [Concomitant]
     Dosage: 1 D/F, DAILY (1/D)
     Dates: start: 20040101
  3. FORTEO [Suspect]
     Indication: OSTEOPOROSIS
     Dosage: 20 UG, DAILY (1/D)
     Route: 058
     Dates: start: 20100901, end: 20101217

REACTIONS (2)
  - BRONCHITIS [None]
  - INTERVERTEBRAL DISC COMPRESSION [None]
